FAERS Safety Report 10486404 (Version 2)
Quarter: 2014Q4

REPORT INFORMATION
  Report Type: Spontaneous
  Country: US (occurrence: None)
  Receive Date: 20140926
  Receipt Date: 20141024
  Transmission Date: 20150528
  Serious: Yes (Life-Threatening)
  Sender: FDA-Public Use
  Company Number: 1713747-2014-99987

PATIENT
  Age: 63 Year
  Sex: Male
  Weight: 85.9 kg

DRUGS (20)
  1. DELFLEX [Suspect]
     Active Substance: CALCIUM CHLORIDE\DEXTROSE MONOHYDRATE\MAGNESIUM CHLORIDE\SODIUM CHLORIDE\SODIUM LACTATE
     Indication: CHRONIC KIDNEY DISEASE
     Dosage: PERITONEAL DIALYSIS
     Dates: start: 20111128
  2. CELEXA [Concomitant]
     Active Substance: CITALOPRAM HYDROBROMIDE
  3. RESTORIL [Concomitant]
     Active Substance: TEMAZEPAM
  4. RENAL SOFTGEL [Concomitant]
  5. TESSALON PEARLS [Concomitant]
  6. RENVELA [Concomitant]
     Active Substance: SEVELAMER CARBONATE
  7. LIBERTY CYCLER [Concomitant]
     Active Substance: DEVICE
  8. HOME EPOGEN [Concomitant]
  9. PRILOSEC [Concomitant]
     Active Substance: OMEPRAZOLE MAGNESIUM
  10. CLONODINE [Concomitant]
  11. EPOGEN [Concomitant]
     Active Substance: ERYTHROPOIETIN
  12. ASPIRIN. [Concomitant]
     Active Substance: ASPIRIN
  13. SIMVASTATIN. [Concomitant]
     Active Substance: SIMVASTATIN
  14. ZEMPLAR [Concomitant]
     Active Substance: PARICALCITOL
  15. VENOFER [Concomitant]
     Active Substance: IRON SUCROSE
  16. CEFTIN HOME KIT [Concomitant]
  17. CEFTIN /VANCOMYCIN HOME KIT [Concomitant]
  18. LEVEMIR FLEX PEN NOVOLOG [Concomitant]
  19. DIOVAN [Concomitant]
     Active Substance: VALSARTAN
  20. LIBERTY CYCLER SET-DUAL PATIENT CONNECT MEDICATIONS: [Concomitant]

REACTIONS (4)
  - Peritonitis [None]
  - Nausea [None]
  - Diarrhoea [None]
  - Peritoneal cloudy effluent [None]

NARRATIVE: CASE EVENT DATE: 20111128
